FAERS Safety Report 6159880-4 (Version None)
Quarter: 2009Q2

REPORT INFORMATION
  Report Type: 
  Country: None (occurrence: None)
  Receive Date: 20090420
  Receipt Date: 20090414
  Transmission Date: 20091009
  Serious: Yes (Hospitalization)
  Sender: FDA-Public Use
  Company Number: PHEH2009US03715

PATIENT
  Age: 78 Year
  Sex: Male

DRUGS (3)
  1. ZOMETA [Suspect]
     Indication: METASTASES TO BONE
     Dosage: 4MG EVERY 4WEEKS
     Route: 042
     Dates: start: 20031101, end: 20070401
  2. ZOMETA [Suspect]
     Dosage: 4MG EVERY OTHER MONTH
     Route: 042
     Dates: start: 20070401, end: 20070801
  3. HYDROCORTISONE [Concomitant]

REACTIONS (2)
  - OSTEONECROSIS [None]
  - TOOTHACHE [None]
